FAERS Safety Report 14671035 (Version 1)
Quarter: 2018Q1

REPORT INFORMATION
  Report Type: Report from Study
  Country: None (occurrence: DE)
  Receive Date: 20180322
  Receipt Date: 20180322
  Transmission Date: 20180509
  Serious: Yes (Hospitalization)
  Sender: FDA-Public Use
  Company Number: DE-ABBVIE-18P-062-2292660-00

PATIENT
  Age: 40 Year
  Sex: Male
  Weight: 133 kg

DRUGS (3)
  1. QUETIAPINE. [Concomitant]
     Active Substance: QUETIAPINE
     Indication: DRUG DEPENDENCE
  2. MAVIRET [Suspect]
     Active Substance: GLECAPREVIR\PIBRENTASVIR
     Indication: CHRONIC HEPATITIS C
     Route: 048
     Dates: start: 20171209, end: 20180130
  3. DIAZEPAM. [Concomitant]
     Active Substance: DIAZEPAM
     Indication: DRUG DEPENDENCE

REACTIONS (2)
  - Detoxification [Recovered/Resolved]
  - Dependence [Recovered/Resolved]

NARRATIVE: CASE EVENT DATE: 201801
